FAERS Safety Report 5124001-3 (Version None)
Quarter: 2006Q4

REPORT INFORMATION
  Report Type: 
  Country: None (occurrence: None)
  Receive Date: 20061010
  Receipt Date: 20061004
  Transmission Date: 20070319
  Serious: Yes (Other)
  Sender: FDA-Public Use
  Company Number: JP-MERCK-0610USA04409

PATIENT
  Age: 77 Year
  Sex: Female

DRUGS (5)
  1. PEPCID RPD [Suspect]
     Route: 048
     Dates: start: 20051001, end: 20051101
  2. [THERAPY UNSPECIFIED] [Suspect]
     Route: 065
  3. [THERAPY UNSPECIFIED] [Suspect]
     Route: 065
  4. [THERAPY UNSPECIFIED] [Suspect]
     Route: 065
  5. [THERAPY UNSPECIFIED] [Suspect]
     Route: 065

REACTIONS (1)
  - LIVER DISORDER [None]
